FAERS Safety Report 8555329-2 (Version None)
Quarter: 2012Q3

REPORT INFORMATION
  Report Type: 
  Country: None (occurrence: None)
  Receive Date: 20120731
  Receipt Date: 20110923
  Transmission Date: 20120928
  Serious: No
  Sender: FDA-Public Use
  Company Number: US-ASTRAZENECA-2011SE41406

PATIENT
  Age: 64 Year
  Sex: Female
  Weight: 81.6 kg

DRUGS (8)
  1. TOVIAZ [Concomitant]
  2. TEGRETOL [Concomitant]
  3. SEROQUEL [Suspect]
     Indication: BIPOLAR DISORDER
     Route: 048
  4. BYSTOLIC [Concomitant]
  5. LEXAPRO [Concomitant]
  6. IMITREX [Concomitant]
  7. IBUPROFEN (ADVIL) [Concomitant]
  8. CA CITRATE [Concomitant]

REACTIONS (7)
  - METABOLIC SYNDROME [None]
  - GASTROINTESTINAL DISORDER [None]
  - NERVOUSNESS [None]
  - ANXIETY [None]
  - MALAISE [None]
  - WRONG TECHNIQUE IN DRUG USAGE PROCESS [None]
  - DRUG DOSE OMISSION [None]
